FAERS Safety Report 22384962 (Version 1)
Quarter: 2023Q2

REPORT INFORMATION
  Report Type: Report from Study
  Country: EG (occurrence: EG)
  Receive Date: 20230530
  Receipt Date: 20230530
  Transmission Date: 20230722
  Serious: Yes (Hospitalization, Other)
  Sender: FDA-Public Use
  Company Number: EG-002147023-NVSC2023EG123005

PATIENT
  Sex: Female

DRUGS (24)
  1. ENTRESTO [Suspect]
     Active Substance: SACUBITRIL\VALSARTAN
     Indication: Cardiac failure
     Dosage: 2 DOSAGE FORM, QD (EMPTY STOMACH IN THE MORNING)
     Route: 048
     Dates: start: 2020, end: 202102
  2. ENTRESTO [Suspect]
     Active Substance: SACUBITRIL\VALSARTAN
     Dosage: 1 DOSAGE FORM, QD
     Route: 048
     Dates: start: 20210705, end: 202110
  3. ENTRESTO [Suspect]
     Active Substance: SACUBITRIL\VALSARTAN
     Dosage: 1 DOSAGE FORM, BID (AFTER MEALS)
     Route: 048
  4. RIVAROXABAN [Suspect]
     Active Substance: RIVAROXABAN
     Indication: Thrombosis
     Dosage: 1 DOSAGE FORM, QD
     Route: 048
     Dates: start: 20210705
  5. BUSPAR [Concomitant]
     Active Substance: BUSPIRONE HYDROCHLORIDE
     Indication: Disturbance in attention
     Dosage: 1 DOSAGE FORM, QD (AT NIGHT)
     Route: 048
     Dates: start: 2022
  6. BUSPAR [Concomitant]
     Active Substance: BUSPIRONE HYDROCHLORIDE
     Indication: Sedative therapy
  7. NEBIVOLOL HYDROCHLORIDE [Concomitant]
     Active Substance: NEBIVOLOL HYDROCHLORIDE
     Indication: Hypertension
     Dosage: 1 DOSAGE FORM, QD (STARTED 2 YEARS AGO)
     Route: 048
  8. NEBIVOLOL HYDROCHLORIDE [Concomitant]
     Active Substance: NEBIVOLOL HYDROCHLORIDE
     Indication: Cardiac disorder
  9. TOUJEO [Concomitant]
     Active Substance: INSULIN GLARGINE
     Indication: Diabetes mellitus
     Dosage: 35 IU, QD (STARTED 2 YEARS AGO, PEN)
     Route: 065
  10. GLYXAMBI [Concomitant]
     Active Substance: EMPAGLIFLOZIN\LINAGLIPTIN
     Indication: Diabetes mellitus
     Dosage: 1 DOSAGE FORM, QD(BEFORE BREAKFAST)
     Route: 048
     Dates: start: 20221115
  11. GLICLAZIDE [Concomitant]
     Active Substance: GLICLAZIDE
     Indication: Diabetes mellitus
     Dosage: 1 DOSAGE FORM, QD
     Route: 065
  12. CARFALONE [Concomitant]
     Indication: Product used for unknown indication
     Dosage: 1 DOSAGE FORM, QD(AFTER LUNCH)
     Route: 048
     Dates: start: 20230320
  13. HERBALS [Concomitant]
     Active Substance: HERBALS
     Indication: Cholelithiasis
     Dosage: 1 DOSAGE FORM, BID
     Route: 048
     Dates: start: 2022
  14. MARCAL [Concomitant]
     Indication: Blood calcium decreased
     Dosage: 1 DOSAGE FORM, BID(FOUR YEARS AGO)
     Route: 048
  15. GABAPENTIN [Concomitant]
     Active Substance: GABAPENTIN
     Indication: Neuropathy peripheral
     Dosage: 2 DOSAGE FORM, QD(AT NIGHT)
     Route: 048
     Dates: start: 202302
  16. BENFOTIAMINE\CYANOCOBALAMIN\PYRIDOXINE HYDROCHLORIDE [Concomitant]
     Active Substance: BENFOTIAMINE\CYANOCOBALAMIN\PYRIDOXINE HYDROCHLORIDE
     Indication: Neuropathy peripheral
     Dosage: 1 DOSAGE FORM, BID
     Route: 048
     Dates: start: 202302
  17. DEPOVIT B12 [Concomitant]
     Indication: Neuropathy peripheral
     Dosage: 1 DOSAGE FORM, QW(AMPULE)
     Route: 065
     Dates: start: 202302
  18. DELTAVIT [Concomitant]
     Indication: Neuropathy peripheral
     Dosage: 1 DOSAGE FORM, QD
     Route: 065
     Dates: start: 202302
  19. AMIPROSTONE [Concomitant]
     Indication: Gastric disorder
     Dosage: 2 DOSAGE FORM, QD
     Route: 048
     Dates: start: 2022
  20. NEXIUM [Concomitant]
     Active Substance: ESOMEPRAZOLE MAGNESIUM
     Indication: Gastric disorder
     Dosage: 1 DOSAGE FORM, QD(SEVEN YEARS AGO0
     Route: 048
  21. CINNARIZINE [Concomitant]
     Active Substance: CINNARIZINE
     Indication: Disturbance in attention
     Dosage: 1 DOSAGE FORM, QD(15 OR 16 YEARS AGO)
     Route: 048
  22. URGINAFECT [Concomitant]
     Indication: Bladder disorder
     Dosage: 1 DOSAGE FORM, QD
     Route: 048
     Dates: start: 2022
  23. SIDERAL [Concomitant]
     Indication: Anaemia
     Dosage: 1 DOSAGE FORM, QD(SACHETS)
     Route: 048
     Dates: end: 202211
  24. SIDERAL [Concomitant]
     Indication: Haemoglobin decreased

REACTIONS (7)
  - Hypotension [Recovered/Resolved]
  - Pulmonary oedema [Recovered/Resolved]
  - Dyspnoea [Recovered/Resolved]
  - Drug hypersensitivity [Recovered/Resolved]
  - Rash pruritic [Recovered/Resolved]
  - Oedema peripheral [Recovering/Resolving]
  - Product use issue [Unknown]

NARRATIVE: CASE EVENT DATE: 20200101
